FAERS Safety Report 6884201-9 (Version None)
Quarter: 2010Q3

REPORT INFORMATION
  Report Type: 
  Country: None (occurrence: None)
  Receive Date: 20100729
  Receipt Date: 20070605
  Transmission Date: 20110219
  Serious: No
  Sender: FDA-Public Use
  Company Number: US-PFIZER INC-2007046139

PATIENT
  Age: 64 Year
  Sex: Female
  Weight: 79.38 kg

DRUGS (2)
  1. CELEBREX [Suspect]
     Indication: ARTHRALGIA
     Route: 048
     Dates: start: 20070101, end: 20070601
  2. WELLBUTRIN [Concomitant]

REACTIONS (2)
  - DEPRESSION [None]
  - PALPITATIONS [None]
